FAERS Safety Report 13802232 (Version 6)
Quarter: 2018Q4

REPORT INFORMATION
  Report Type: Spontaneous
  Country: US (occurrence: US)
  Receive Date: 20170727
  Receipt Date: 20181220
  Transmission Date: 20190204
  Serious: Yes (Hospitalization, Other)
  Sender: FDA-Public Use
  Company Number: US-ACTELION-A-NJ2017-157241

PATIENT
  Age: 79 Year
  Sex: Male

DRUGS (2)
  1. OXYGEN. [Concomitant]
     Active Substance: OXYGEN
  2. OPSUMIT [Suspect]
     Active Substance: MACITENTAN
     Indication: PULMONARY ARTERIAL HYPERTENSION
     Dosage: 10 MG, QD
     Route: 048
     Dates: start: 20161228

REACTIONS (9)
  - Wound dehiscence [Unknown]
  - Spinal fusion surgery [Recovered/Resolved with Sequelae]
  - Postoperative wound complication [Unknown]
  - Hypotension [Recovered/Resolved]
  - Septic shock [Recovered/Resolved]
  - Product dose omission [Unknown]
  - Respiratory failure [Recovered/Resolved]
  - Infection [Recovered/Resolved]
  - Oesophageal achalasia [Unknown]

NARRATIVE: CASE EVENT DATE: 20170627
